FAERS Safety Report 7589450-2 (Version None)
Quarter: 2011Q3

REPORT INFORMATION
  Report Type: 
  Country: None (occurrence: None)
  Receive Date: 20110705
  Receipt Date: 20110628
  Transmission Date: 20111222
  Serious: Yes (Other)
  Sender: FDA-Public Use
  Company Number: GB-TEVA-288779ISR

PATIENT
  Sex: Female

DRUGS (1)
  1. ETOPOSIDE [Suspect]

REACTIONS (1)
  - COLITIS [None]
